FAERS Safety Report 17526217 (Version 1)
Quarter: 2020Q1

REPORT INFORMATION
  Report Type: Spontaneous
  Country: CN (occurrence: CN)
  Receive Date: 20200311
  Receipt Date: 20200311
  Transmission Date: 20200409
  Serious: Yes (Death, Other)
  Sender: FDA-Public Use
  Company Number: CN-ROCHE-2564867

PATIENT
  Age: 39 Year
  Sex: Male

DRUGS (54)
  1. RITUXIMAB. [Suspect]
     Active Substance: RITUXIMAB
     Dosage: R-ESHAP REGIMEN
     Route: 065
     Dates: start: 20130330
  2. RITUXIMAB. [Suspect]
     Active Substance: RITUXIMAB
     Dosage: R-COEP-R REGIMEN
     Route: 065
     Dates: start: 20130518
  3. RITUXIMAB. [Suspect]
     Active Substance: RITUXIMAB
     Dosage: R-BEAM-R REGIMEN
     Route: 065
     Dates: start: 20130705
  4. RITUXIMAB. [Suspect]
     Active Substance: RITUXIMAB
     Dosage: R-DA-EPOCH REGIMEN, DAY0
     Route: 065
     Dates: start: 20180627
  5. RITUXIMAB. [Suspect]
     Active Substance: RITUXIMAB
     Dosage: BR REGIMEN, DAY1
     Route: 065
     Dates: start: 20180928
  6. DOXORUBICIN [Suspect]
     Active Substance: DOXORUBICIN
     Dosage: R-DA-EPOCH REGIMEN, DAY1
     Route: 065
     Dates: start: 20180627
  7. PREDNISONE. [Suspect]
     Active Substance: PREDNISONE
     Dosage: R-DA-EPOCH REGIMEN, DAY1-5
     Route: 065
     Dates: start: 20180627
  8. ETOPOSIDE. [Suspect]
     Active Substance: ETOPOSIDE
     Indication: DIFFUSE LARGE B-CELL LYMPHOMA
     Dosage: R-ESHAP REGIMEN
     Route: 065
     Dates: start: 20130215
  9. ETOPOSIDE. [Suspect]
     Active Substance: ETOPOSIDE
     Dosage: R-ESHAP REGIMEN
     Route: 065
     Dates: start: 20130330
  10. METHYLPREDNISOLONE. [Suspect]
     Active Substance: METHYLPREDNISOLONE
     Dosage: R-ESHAP REGIMEN
     Route: 065
     Dates: start: 20130309
  11. RITUXIMAB. [Suspect]
     Active Substance: RITUXIMAB
     Dosage: R-ESHAP REGIMEN
     Route: 065
     Dates: start: 20130120
  12. RITUXIMAB. [Suspect]
     Active Substance: RITUXIMAB
     Dosage: R-ESHAP REGIMEN
     Route: 065
     Dates: start: 20130309
  13. DOXORUBICIN [Suspect]
     Active Substance: DOXORUBICIN
     Indication: DIFFUSE LARGE B-CELL LYMPHOMA
     Dosage: R-CHOP REGIMEN
     Route: 065
     Dates: start: 20121225
  14. PREDNISONE. [Suspect]
     Active Substance: PREDNISONE
     Indication: B-CELL LYMPHOMA
     Dosage: R-CHOP REGIMEN
     Route: 065
     Dates: start: 20121130
  15. CYTARABINE. [Suspect]
     Active Substance: CYTARABINE
     Dosage: R-ESHAP REGIMEN
     Route: 065
     Dates: start: 20130330
  16. CYCLOPHOSPHAMIDE. [Suspect]
     Active Substance: CYCLOPHOSPHAMIDE
     Indication: DIFFUSE LARGE B-CELL LYMPHOMA
     Dosage: R-CHOP REGIMEN
     Route: 065
     Dates: start: 20121225
  17. DOXORUBICIN [Suspect]
     Active Substance: DOXORUBICIN
     Indication: B-CELL LYMPHOMA
     Dosage: R-CHOP REGIMEN
     Route: 065
     Dates: start: 20121130
  18. VINCRISTINE [Suspect]
     Active Substance: VINCRISTINE
     Indication: DIFFUSE LARGE B-CELL LYMPHOMA
     Dosage: R-CHOP REGIMEN
     Route: 065
     Dates: start: 20121225
  19. VINCRISTINE [Suspect]
     Active Substance: VINCRISTINE
     Dosage: R-COEP-R REGIMEN
     Route: 065
     Dates: start: 20130518
  20. CYTARABINE. [Suspect]
     Active Substance: CYTARABINE
     Indication: DIFFUSE LARGE B-CELL LYMPHOMA
     Dosage: R-ESHAP REGIMEN
     Route: 065
     Dates: start: 20130215
  21. MELPHALAN. [Suspect]
     Active Substance: MELPHALAN
     Indication: B-CELL LYMPHOMA
     Dosage: R-BEAM-R REGIMEN
     Route: 065
     Dates: start: 20130705
  22. BENDAMUSTINE [Suspect]
     Active Substance: BENDAMUSTINE
     Indication: DIFFUSE LARGE B-CELL LYMPHOMA
     Dosage: BR REGIMEN, DAY1-4
     Route: 065
     Dates: start: 20181020
  23. RITUXIMAB. [Suspect]
     Active Substance: RITUXIMAB
     Dosage: PD-1+BR REGIMEN, DAY1
     Route: 065
     Dates: start: 20181020
  24. CYCLOPHOSPHAMIDE. [Suspect]
     Active Substance: CYCLOPHOSPHAMIDE
     Indication: B-CELL LYMPHOMA
     Dosage: R-CHOP REGIMEN
     Route: 065
     Dates: start: 20121130
  25. CYCLOPHOSPHAMIDE. [Suspect]
     Active Substance: CYCLOPHOSPHAMIDE
     Dosage: R-DA-EPOCH REGIMEN, DAY5
     Route: 065
     Dates: start: 20180627
  26. VINCRISTINE [Suspect]
     Active Substance: VINCRISTINE
     Indication: B-CELL LYMPHOMA
     Dosage: R-CHOP REGIMEN
     Route: 065
     Dates: start: 20121130
  27. ETOPOSIDE. [Suspect]
     Active Substance: ETOPOSIDE
     Indication: B-CELL LYMPHOMA
     Dosage: R-ESHAP REGIMEN
     Route: 065
     Dates: start: 20130120
  28. ETOPOSIDE. [Suspect]
     Active Substance: ETOPOSIDE
     Dosage: R-ESHAP REGIMEN
     Route: 065
     Dates: start: 20130309
  29. ETOPOSIDE. [Suspect]
     Active Substance: ETOPOSIDE
     Dosage: R-COEP-R REGIMEN
     Route: 065
     Dates: start: 20130518
  30. METHYLPREDNISOLONE. [Suspect]
     Active Substance: METHYLPREDNISOLONE
     Dosage: R-ESHAP REGIMEN
     Route: 065
     Dates: start: 20130330
  31. CYTARABINE. [Suspect]
     Active Substance: CYTARABINE
     Indication: B-CELL LYMPHOMA
     Dosage: R-ESHAP REGIMEN
     Route: 065
     Dates: start: 20130120
  32. CYTARABINE. [Suspect]
     Active Substance: CYTARABINE
     Dosage: R-BEAM-R REGIMEN
     Route: 065
     Dates: start: 20130705
  33. VINDESINE [Suspect]
     Active Substance: VINDESINE
     Indication: B-CELL LYMPHOMA
     Dosage: R-DA-EPOCH REGIMEN, DAY1-4
     Route: 065
     Dates: start: 20180627
  34. PREDNISONE. [Suspect]
     Active Substance: PREDNISONE
     Dosage: R-COEP-R REGIMEN
     Route: 065
     Dates: start: 20130518
  35. ETOPOSIDE. [Suspect]
     Active Substance: ETOPOSIDE
     Dosage: R-BEAM-R REGIMEN
     Route: 065
     Dates: start: 20130705
  36. METHYLPREDNISOLONE. [Suspect]
     Active Substance: METHYLPREDNISOLONE
     Indication: DIFFUSE LARGE B-CELL LYMPHOMA
     Dosage: R-ESHAP REGIMEN
     Route: 065
     Dates: start: 20130215
  37. CYTARABINE. [Suspect]
     Active Substance: CYTARABINE
     Dosage: R-ESHAP REGIMEN
     Route: 065
     Dates: start: 20130309
  38. MELPHALAN. [Suspect]
     Active Substance: MELPHALAN
     Indication: DIFFUSE LARGE B-CELL LYMPHOMA
  39. BENDAMUSTINE [Suspect]
     Active Substance: BENDAMUSTINE
     Indication: B-CELL LYMPHOMA
     Dosage: BR REGIMEN, DAY1-2
     Route: 065
     Dates: start: 20180928
  40. RITUXIMAB. [Suspect]
     Active Substance: RITUXIMAB
     Indication: B-CELL LYMPHOMA
     Dosage: R-CHOP REGIMEN
     Route: 065
     Dates: start: 20121130
  41. RITUXIMAB. [Suspect]
     Active Substance: RITUXIMAB
     Route: 065
     Dates: start: 20131005, end: 20151005
  42. METHYLPREDNISOLONE. [Suspect]
     Active Substance: METHYLPREDNISOLONE
     Indication: B-CELL LYMPHOMA
     Dosage: R-ESHAP REGIMEN
     Route: 065
     Dates: start: 20130120
  43. CISPLATIN. [Suspect]
     Active Substance: CISPLATIN
     Indication: DIFFUSE LARGE B-CELL LYMPHOMA
     Dosage: R-ESHAP REGIMEN
     Route: 065
     Dates: start: 20130215
  44. CISPLATIN. [Suspect]
     Active Substance: CISPLATIN
     Dosage: R-ESHAP REGIMEN
     Route: 065
     Dates: start: 20130330
  45. RITUXIMAB. [Suspect]
     Active Substance: RITUXIMAB
     Dosage: R-ESHAP REGIMEN
     Route: 065
     Dates: start: 20130215
  46. CYCLOPHOSPHAMIDE. [Suspect]
     Active Substance: CYCLOPHOSPHAMIDE
     Dosage: R-COEP-R REGIMEN
     Route: 065
     Dates: start: 20130518
  47. ETOPOSIDE. [Suspect]
     Active Substance: ETOPOSIDE
     Dosage: R-DA-EPOCH REGIMEN, DAY-1-4
     Route: 065
     Dates: start: 20180627
  48. CISPLATIN. [Suspect]
     Active Substance: CISPLATIN
     Dosage: R-ESHAP REGIMEN
     Route: 065
     Dates: start: 20130309
  49. CARMUSTINE. [Suspect]
     Active Substance: CARMUSTINE
     Indication: B-CELL LYMPHOMA
     Dosage: R-BEAM-R REGIMEN
     Route: 065
     Dates: start: 20130705
  50. CARMUSTINE. [Suspect]
     Active Substance: CARMUSTINE
     Indication: DIFFUSE LARGE B-CELL LYMPHOMA
  51. RITUXIMAB. [Suspect]
     Active Substance: RITUXIMAB
     Indication: DIFFUSE LARGE B-CELL LYMPHOMA
     Dosage: R-CHOP REGIMEN
     Route: 065
     Dates: start: 20121225
  52. PREDNISONE. [Suspect]
     Active Substance: PREDNISONE
     Indication: DIFFUSE LARGE B-CELL LYMPHOMA
     Dosage: R-CHOP REGIMEN
     Route: 065
     Dates: start: 20121225
  53. CISPLATIN. [Suspect]
     Active Substance: CISPLATIN
     Indication: B-CELL LYMPHOMA
     Dosage: R-ESHAP REGIMEN
     Route: 065
     Dates: start: 20130120
  54. VINDESINE [Suspect]
     Active Substance: VINDESINE
     Indication: DIFFUSE LARGE B-CELL LYMPHOMA

REACTIONS (3)
  - Bone marrow failure [Unknown]
  - Pneumonia [Unknown]
  - Respiratory failure [Fatal]

NARRATIVE: CASE EVENT DATE: 2018
